FAERS Safety Report 7605269-8 (Version None)
Quarter: 2011Q3

REPORT INFORMATION
  Report Type: 
  Country: None (occurrence: None)
  Receive Date: 20110713
  Receipt Date: 20110708
  Transmission Date: 20111222
  Serious: Yes (Hospitalization, Other)
  Sender: FDA-Public Use
  Company Number: FR-CELGENEUS-056-C5013-11060741

PATIENT
  Sex: Male
  Weight: 86 kg

DRUGS (9)
  1. EPOGEN [Concomitant]
     Dosage: 4285.7143 IU (INTERNATIONAL UNIT)
     Route: 058
     Dates: start: 20100913
  2. PAMIDRONATE DISODIUM [Concomitant]
     Indication: BONE LESION
     Dosage: 2.1429 MILLIGRAM
     Route: 051
     Dates: start: 20100215
  3. MELPHALAN HYDROCHLORIDE [Suspect]
     Indication: MULTIPLE MYELOMA
     Dosage: 22 MILLIGRAM
     Route: 065
     Dates: start: 20100105
  4. PREDNISONE [Suspect]
     Indication: MULTIPLE MYELOMA
     Dosage: 180 MILLIGRAM
     Route: 065
     Dates: start: 20100105
  5. THALIDOMIDE [Suspect]
     Indication: MULTIPLE MYELOMA
     Dosage: 200 MILLIGRAM
     Route: 048
     Dates: start: 20100105
  6. PREDNISONE [Suspect]
     Dosage: 175 MILLIGRAM
     Route: 065
     Dates: start: 20110412, end: 20110415
  7. MELPHALAN HYDROCHLORIDE [Suspect]
     Dosage: 22 MILLIGRAM
     Route: 065
     Dates: start: 20110412, end: 20110415
  8. ASPIRIN [Concomitant]
     Indication: PROPHYLAXIS
     Dosage: 75 MILLIGRAM
     Route: 048
     Dates: start: 20100106
  9. THALIDOMIDE [Suspect]
     Dosage: 200 MILLIGRAM
     Route: 048
     Dates: start: 20110412, end: 20110522

REACTIONS (2)
  - ACUTE MYELOID LEUKAEMIA [None]
  - GENERAL PHYSICAL HEALTH DETERIORATION [None]
